FAERS Safety Report 6202415-8 (Version None)
Quarter: 2009Q2

REPORT INFORMATION
  Report Type: 
  Country: None (occurrence: None)
  Receive Date: 20090521
  Receipt Date: 20090521
  Transmission Date: 20091009
  Serious: Yes (Other)
  Sender: FDA-Public Use
  Company Number: None

PATIENT
  Sex: Female
  Weight: 54.4316 kg

DRUGS (2)
  1. LEXAPRO [Suspect]
     Indication: ANXIETY
     Dosage: 5 MG (LIQUID) DAILY
     Dates: start: 20050601
  2. LEXAPRO [Suspect]
     Indication: ANXIETY
     Dosage: 5 MG (LIQUID) DAILY
     Dates: start: 20081201

REACTIONS (3)
  - BLADDER DISORDER [None]
  - CONDITION AGGRAVATED [None]
  - ULCER [None]
